FAERS Safety Report 19022515 (Version 1)
Quarter: 2021Q1

REPORT INFORMATION
  Report Type: Spontaneous
  Country: US (occurrence: US)
  Receive Date: 20210318
  Receipt Date: 20210318
  Transmission Date: 20210420
  Serious: No
  Sender: FDA-Public Use
  Company Number: US-UNICHEM PHARMACEUTICALS (USA) INC-UCM202102-000112

PATIENT
  Age: 73 Year
  Sex: Female
  Weight: 56.69 kg

DRUGS (1)
  1. RIZATRIPTAN. [Suspect]
     Active Substance: RIZATRIPTAN
     Indication: HEADACHE
     Dosage: MAXIMUM 8 TABLETS A MONTH
     Dates: start: 20210129, end: 20210131

REACTIONS (3)
  - Product taste abnormal [Unknown]
  - Therapy non-responder [Unknown]
  - Product solubility abnormal [Unknown]
